FAERS Safety Report 24215065 (Version 1)
Quarter: 2024Q3

REPORT INFORMATION
  Report Type: Report from Study
  Country: JP (occurrence: JP)
  Receive Date: 20240816
  Receipt Date: 20240816
  Transmission Date: 20241017
  Serious: Yes (Hospitalization, Other)
  Sender: ABBVIE
  Company Number: JP-TAKEDA-2019TJP028248

PATIENT
  Age: 71 Year
  Sex: Male
  Weight: 58.4 kg

DRUGS (1)
  1. LEUPROLIDE ACETATE [Suspect]
     Active Substance: ISOPROPYL ALCOHOL\LEUPROLIDE ACETATE
     Indication: Bulbospinal muscular atrophy congenital
     Route: 058
     Dates: start: 20170926, end: 20180402

REACTIONS (3)
  - Myelopathy [Not Recovered/Not Resolved]
  - Hypogonadism male [Recovering/Resolving]
  - Libido decreased [Recovering/Resolving]

NARRATIVE: CASE EVENT DATE: 20171215
